FAERS Safety Report 12827804 (Version 2)
Quarter: 2017Q1

REPORT INFORMATION
  Report Type: Spontaneous
  Country: JP (occurrence: JP)
  Receive Date: 20161006
  Receipt Date: 20170301
  Transmission Date: 20170428
  Serious: Yes (Hospitalization)
  Sender: FDA-Public Use
  Company Number: JP-BAYER-2014-112528

PATIENT
  Age: 78 Year
  Sex: Male

DRUGS (1)
  1. STIVARGA [Suspect]
     Active Substance: REGORAFENIB
     Indication: RECTAL CANCER
     Dosage: 160 MG, QD
     Route: 048
     Dates: start: 20140106, end: 20140127

REACTIONS (9)
  - Oedema peripheral [Recovered/Resolved]
  - Palmar-plantar erythrodysaesthesia syndrome [Recovering/Resolving]
  - Abdominal distension [Recovered/Resolved]
  - Face oedema [Recovered/Resolved]
  - Hypoalbuminaemia [Recovered/Resolved]
  - Proteinuria [Recovered/Resolved]
  - Generalised oedema [Recovered/Resolved]
  - Blister [Recovering/Resolving]
  - Nephrotic syndrome [Recovered/Resolved]

NARRATIVE: CASE EVENT DATE: 20140120
